FAERS Safety Report 13125520 (Version 1)
Quarter: 2017Q1

REPORT INFORMATION
  Report Type: Other
  Country: IL (occurrence: IL)
  Receive Date: 20170118
  Receipt Date: 20170118
  Transmission Date: 20170428
  Serious: Yes (Other)
  Sender: FDA-Public Use
  Company Number: IL-LUPIN PHARMACEUTICALS INC.-2016-00232

PATIENT
  Age: 67 Year
  Sex: Female

DRUGS (2)
  1. TRAMADOL. [Suspect]
     Active Substance: TRAMADOL
     Indication: BACK PAIN
     Route: 065
  2. SPASMALGIN [Suspect]
     Active Substance: ACETAMINOPHEN\ATROPINE\CODEINE\PAPAVERINE
     Indication: BACK PAIN
     Route: 065

REACTIONS (3)
  - Dry mouth [Unknown]
  - Urinary retention [Unknown]
  - Drug ineffective [Unknown]
